FAERS Safety Report 13434662 (Version 2)
Quarter: 2019Q3

REPORT INFORMATION
  Report Type: Spontaneous
  Country: US (occurrence: US)
  Receive Date: 20170413
  Receipt Date: 20190815
  Transmission Date: 20191004
  Serious: No
  Sender: FDA-Public Use
  Company Number: US-PFIZER INC-2017154879

PATIENT
  Age: 78 Year
  Sex: Female
  Weight: 95.45 kg

DRUGS (3)
  1. KEFLEX [Suspect]
     Active Substance: CEPHALEXIN
     Dosage: UNK
  2. LIPITOR [Suspect]
     Active Substance: ATORVASTATIN CALCIUM
     Dosage: UNK
  3. SIMVASTATIN. [Suspect]
     Active Substance: SIMVASTATIN
     Dosage: UNK

REACTIONS (2)
  - Myalgia [Unknown]
  - Drug hypersensitivity [Unknown]
